FAERS Safety Report 6929746-8 (Version None)
Quarter: 2010Q3

REPORT INFORMATION
  Report Type: 
  Country: None (occurrence: None)
  Receive Date: 20100813
  Receipt Date: 20100805
  Transmission Date: 20110219
  Serious: Yes (Other)
  Sender: FDA-Public Use
  Company Number: DSA_43665_2010

PATIENT
  Sex: Male

DRUGS (5)
  1. XENAZINE [Suspect]
     Indication: HUNTINGTON'S DISEASE
     Dosage: 12.5 MG QD ORAL, 12.5 MG QD ORAL
     Route: 048
     Dates: start: 20100101, end: 20100101
  2. XENAZINE [Suspect]
     Indication: HUNTINGTON'S DISEASE
     Dosage: 12.5 MG QD ORAL, 12.5 MG QD ORAL
     Route: 048
     Dates: start: 20100601, end: 20100101
  3. TRIHEXYPHENIDYL HCL [Concomitant]
  4. LORAZEPAM [Concomitant]
  5. FLUOXETINE [Concomitant]

REACTIONS (3)
  - DYSPNOEA [None]
  - NAUSEA [None]
  - THROAT TIGHTNESS [None]
